FAERS Safety Report 18778119 (Version 2)
Quarter: 2021Q2

REPORT INFORMATION
  Report Type: Report from Study
  Country: MX (occurrence: MX)
  Receive Date: 20210123
  Receipt Date: 20210518
  Transmission Date: 20210717
  Serious: No
  Sender: FDA-Public Use
  Company Number: MX-UCBSA-2021002687

PATIENT
  Sex: Female

DRUGS (1)
  1. ROTIGOTINE [Suspect]
     Active Substance: ROTIGOTINE
     Indication: PARKINSON^S DISEASE
     Dosage: 14 MILLIGRAM (2 MG? 7 PATCHES), ONCE DAILY (QD)
     Route: 062

REACTIONS (1)
  - Device adhesion issue [Unknown]
